FAERS Safety Report 24548537 (Version 2)
Quarter: 2025Q2

REPORT INFORMATION
  Report Type: Report from Study
  Country: BR (occurrence: BR)
  Receive Date: 20241025
  Receipt Date: 20250617
  Transmission Date: 20250716
  Serious: Yes (Other)
  Sender: BIOCON
  Company Number: BR-BIOCON-BCN-2021-000397

PATIENT

DRUGS (41)
  1. TRASTUZUMAB-DKST [Suspect]
     Active Substance: TRASTUZUMAB-DKST
     Indication: Breast cancer
     Route: 042
     Dates: start: 20210413, end: 20220111
  2. PROPRANOLOL HYDROCHLORIDE [Concomitant]
     Active Substance: PROPRANOLOL HYDROCHLORIDE
     Indication: Hypertension
     Route: 065
     Dates: start: 201302, end: 202208
  3. MODURETIC 5-50 [Concomitant]
     Active Substance: AMILORIDE HYDROCHLORIDE\HYDROCHLOROTHIAZIDE
     Indication: Hypertension
     Route: 065
     Dates: start: 201302
  4. ROSUVASTATIN [Concomitant]
     Active Substance: ROSUVASTATIN
     Indication: Dyslipidaemia
     Route: 065
     Dates: start: 20210801
  5. ERGOCALCIFEROL [Concomitant]
     Active Substance: ERGOCALCIFEROL
     Indication: Vitamin supplementation
     Route: 065
     Dates: start: 201802
  6. ZARMINE [Concomitant]
     Indication: Hypertension
     Route: 065
     Dates: start: 20210420
  7. DIPHENHYDRAMINE [Concomitant]
     Active Substance: DIPHENHYDRAMINE
     Indication: Chemotherapy side effect prophylaxis
     Route: 065
     Dates: start: 20210118, end: 20210420
  8. GRANISETRON [Concomitant]
     Active Substance: GRANISETRON
     Indication: Chemotherapy side effect prophylaxis
     Route: 065
     Dates: start: 20210118, end: 20210420
  9. DEXAMETHASONE [Concomitant]
     Active Substance: DEXAMETHASONE
     Indication: Chemotherapy side effect prophylaxis
     Route: 065
     Dates: start: 20210118, end: 20210420
  10. NASONEX [Concomitant]
     Active Substance: MOMETASONE FUROATE
     Indication: Rhinitis
     Route: 065
     Dates: start: 20210901
  11. METFORMIN HYDROCHLORIDE [Concomitant]
     Active Substance: METFORMIN HYDROCHLORIDE
     Indication: Diabetes mellitus
     Route: 065
     Dates: start: 20210914
  12. DULOXETINE [Concomitant]
     Active Substance: DULOXETINE
     Indication: Papule
     Route: 065
     Dates: start: 20210315
  13. DULOXETINE [Concomitant]
     Active Substance: DULOXETINE
     Indication: Macule
  14. METHYLPREDNISOLONE ACEPONATE [Concomitant]
     Active Substance: METHYLPREDNISOLONE ACEPONATE
     Indication: Product used for unknown indication
     Route: 065
     Dates: start: 20210323
  15. RIZI M [Concomitant]
     Indication: Macule
     Route: 065
     Dates: start: 20210323
  16. RIZI M [Concomitant]
     Indication: Rash erythematous
  17. HYDROXYZINE HYDROCHLORIDE [Concomitant]
     Active Substance: HYDROXYZINE HYDROCHLORIDE
     Indication: Papule
     Route: 065
     Dates: start: 20210123
  18. HYDROXYZINE HYDROCHLORIDE [Concomitant]
     Active Substance: HYDROXYZINE HYDROCHLORIDE
     Indication: Macule
  19. DUOFILM PLANTAR [Concomitant]
     Indication: Skin papilloma
     Route: 061
     Dates: start: 20211117
  20. ZOLEDRONIC ACID [Concomitant]
     Active Substance: ZOLEDRONIC ACID
     Indication: Arthralgia
     Route: 065
     Dates: start: 20211130
  21. ZOLEDRONIC ACID [Concomitant]
     Active Substance: ZOLEDRONIC ACID
     Route: 065
     Dates: start: 20220531, end: 20220607
  22. OSCAL D [CALCIUM CARBONATE;COLECALCIFEROL] [Concomitant]
     Indication: Product used for unknown indication
     Route: 065
     Dates: start: 20211130
  23. TRAMADOL [Concomitant]
     Active Substance: TRAMADOL
     Indication: Musculoskeletal pain
     Route: 065
     Dates: start: 20210322, end: 20210601
  24. NOVALGINA [Concomitant]
     Active Substance: ACETAMINOPHEN\CAFFEINE
     Indication: Analgesic therapy
     Route: 065
  25. DIOSMIN [Concomitant]
     Active Substance: DIOSMIN
     Indication: Oedema
     Route: 065
     Dates: start: 20211207
  26. LORATADINE [Concomitant]
     Active Substance: LORATADINE
     Indication: Product used for unknown indication
     Route: 065
     Dates: start: 20210601
  27. PHENERGAN [Concomitant]
     Active Substance: PROMETHAZINE HYDROCHLORIDE
     Indication: Product used for unknown indication
     Route: 065
     Dates: start: 20210601
  28. XARELTO [Concomitant]
     Active Substance: RIVAROXABAN
     Indication: Deep vein thrombosis
     Route: 065
     Dates: start: 20220101
  29. ESOMEPRAZOLE [Concomitant]
     Active Substance: ESOMEPRAZOLE
     Indication: Dyspepsia
     Route: 065
     Dates: start: 20220801
  30. CITONEURIN [CYANOCOBALAMIN;PYRIDOXINE HYDROCHLORIDE;THIAMINE HYDROCHLO [Concomitant]
     Indication: Vitamin B12
     Route: 065
     Dates: start: 20220801
  31. CEFADROXIL [Concomitant]
     Active Substance: CEFADROXIL
     Indication: Infected dermal cyst
     Route: 065
     Dates: start: 20220817, end: 20220823
  32. MORPHINE [Concomitant]
     Active Substance: MORPHINE
     Indication: Spinal pain
     Route: 065
     Dates: start: 20220607
  33. BROMOPRIDE [Concomitant]
     Active Substance: BROMOPRIDE
     Indication: Nausea
     Route: 065
     Dates: start: 20220607
  34. BROMOPRIDE [Concomitant]
     Active Substance: BROMOPRIDE
     Indication: Spinal pain
  35. DIPYRONE [Concomitant]
     Active Substance: DIPYRONE
     Indication: Spinal pain
     Route: 065
     Dates: start: 20220607
  36. DIMENHYDRINATE\PYRIDOXINE [Concomitant]
     Active Substance: DIMENHYDRINATE\PYRIDOXINE
     Indication: Nausea
     Route: 065
     Dates: start: 20220607
  37. DIMENHYDRINATE\PYRIDOXINE [Concomitant]
     Active Substance: DIMENHYDRINATE\PYRIDOXINE
     Indication: Spinal pain
  38. ACETAMINOPHEN\CODEINE PHOSPHATE [Concomitant]
     Active Substance: ACETAMINOPHEN\CODEINE PHOSPHATE
     Indication: Spinal pain
     Route: 065
     Dates: start: 20220601
  39. NIMESULIDE [Concomitant]
     Active Substance: NIMESULIDE
     Indication: Infected dermal cyst
     Route: 065
     Dates: start: 20220814, end: 20220819
  40. PYRIDIUM [Concomitant]
     Active Substance: PHENAZOPYRIDINE
     Indication: Dysuria
     Route: 065
     Dates: start: 20210701, end: 20210701
  41. METOPROLOL [Concomitant]
     Active Substance: METOPROLOL
     Indication: Hypertension
     Route: 065
     Dates: start: 20210420

REACTIONS (24)
  - Deep vein thrombosis [Recovering/Resolving]
  - Back pain [Recovered/Resolved]
  - Neuropathy peripheral [Not Recovered/Not Resolved]
  - Skin papilloma [Recovering/Resolving]
  - Musculoskeletal pain [Recovered/Resolved]
  - Ear pain [Recovered/Resolved]
  - COVID-19 [Recovered/Resolved]
  - Rash [Recovered/Resolved]
  - Hypertension [Recovering/Resolving]
  - Paraesthesia [Recovering/Resolving]
  - Dysgeusia [Recovering/Resolving]
  - Rhinorrhoea [Recovered/Resolved]
  - Nail disorder [Not Recovered/Not Resolved]
  - Arthralgia [Recovering/Resolving]
  - Myalgia [Recovered/Resolved]
  - Pruritus [Recovered/Resolved]
  - Dysuria [Recovered/Resolved]
  - Pain [Recovered/Resolved]
  - Oedema peripheral [Recovered/Resolved]
  - Viral infection [Recovered/Resolved]
  - Headache [Recovered/Resolved]
  - Pyrexia [Recovered/Resolved]
  - Asthenia [Recovered/Resolved]
  - Fatigue [Recovering/Resolving]

NARRATIVE: CASE EVENT DATE: 20210201
